FAERS Safety Report 7014320-8 (Version None)
Quarter: 2010Q3

REPORT INFORMATION
  Report Type: 
  Country: None (occurrence: None)
  Receive Date: 20100927
  Receipt Date: 20100913
  Transmission Date: 20110219
  Serious: No
  Sender: FDA-Public Use
  Company Number: US-B.I. PHARMACEUTICALS,INC./RIDGEFIELD-2010-BP-10338BP

PATIENT
  Age: 59 Year
  Sex: Male

DRUGS (7)
  1. COMBIVENT [Suspect]
     Dosage: 8 PUF
     Route: 055
     Dates: start: 20100701, end: 20100801
  2. ASPIRIN [Concomitant]
  3. NORVASC [Concomitant]
  4. PEPCID [Concomitant]
  5. ATORVASTATIN CALCIUM [Concomitant]
  6. ALBUTEROL [Concomitant]
  7. METOPROLOL TARTRATE [Concomitant]

REACTIONS (5)
  - ANXIETY [None]
  - CHEST DISCOMFORT [None]
  - INSOMNIA [None]
  - RESTLESSNESS [None]
  - TOBACCO USER [None]
